FAERS Safety Report 10207132 (Version 1)
Quarter: 2014Q2

REPORT INFORMATION
  Report Type: Spontaneous
  Country: US (occurrence: US)
  Receive Date: 20140530
  Receipt Date: 20140530
  Transmission Date: 20141212
  Serious: No
  Sender: FDA-Public Use
  Company Number: US-GLAXOSMITHKLINE-A1019842A

PATIENT
  Age: 52 Year
  Sex: Female

DRUGS (4)
  1. VENTOLIN [Suspect]
     Indication: WHEEZING
     Dosage: 1PUFF THREE TIMES PER DAY
     Route: 055
     Dates: start: 20130410, end: 20130410
  2. ZOFRAN [Concomitant]
  3. TESSALON PERLES [Concomitant]
     Route: 048
  4. ALLEGRA [Concomitant]

REACTIONS (3)
  - Wheezing [Not Recovered/Not Resolved]
  - Drug ineffective [Unknown]
  - Product quality issue [Unknown]
